FAERS Safety Report 7466935-0 (Version None)
Quarter: 2011Q2

REPORT INFORMATION
  Report Type: 
  Country: None (occurrence: None)
  Receive Date: 20110509
  Receipt Date: 20110401
  Transmission Date: 20111010
  Serious: Yes (Other)
  Sender: FDA-Public Use
  Company Number: US-BAYER-201014214NA

PATIENT
  Age: 27 Year
  Sex: Female
  Weight: 95 kg

DRUGS (7)
  1. CIPROFLOXACIN [Concomitant]
     Dosage: UNK
     Dates: start: 20070901
  2. YAZ [Suspect]
     Indication: PREMENSTRUAL SYNDROME
  3. NSAID'S [Concomitant]
     Dosage: UNK UNK, PRN
  4. YAZ [Suspect]
     Indication: ORAL CONTRACEPTION
     Route: 048
     Dates: start: 20070601, end: 20080315
  5. ANTIBIOTICS [Concomitant]
     Dosage: UNK UNK, PRN
  6. DOXY [DOXYCYCLINE] [Concomitant]
     Dosage: 100 MG, UNK
  7. PROPOXYPHENE NAPSYLATE W/ ACETAMINOPHEN [Concomitant]
     Dosage: UNK
     Dates: start: 20070901

REACTIONS (6)
  - GALLBLADDER DISORDER [None]
  - ABDOMINAL PAIN UPPER [None]
  - CHOLECYSTITIS [None]
  - VOMITING [None]
  - NAUSEA [None]
  - HERNIA [None]
